FAERS Safety Report 7630494-X (Version None)
Quarter: 2011Q3

REPORT INFORMATION
  Report Type: 
  Country: None (occurrence: None)
  Receive Date: 20110722
  Receipt Date: 20080805
  Transmission Date: 20111222
  Serious: Yes (Disabling, Other)
  Sender: FDA-Public Use
  Company Number: US-BAYER-200825481NA

PATIENT
  Age: 38 Year
  Sex: Male
  Weight: 81 kg

DRUGS (26)
  1. MAGNEVIST [Suspect]
     Indication: ANGIOGRAM
     Dosage: 18 ML
     Dates: start: 20030609, end: 20030609
  2. OPTIMARK [Suspect]
     Indication: NUCLEAR MAGNETIC RESONANCE IMAGING
  3. OPTIMARK [Suspect]
  4. GLUCOTROL XL [Concomitant]
  5. MAGNEVIST [Suspect]
     Dosage: 20 ML
     Dates: start: 20050906, end: 20050906
  6. OMNISCAN [Suspect]
     Dosage: 20 ML
     Dates: start: 20041107, end: 20041107
  7. MULTIHANCE [Suspect]
     Indication: NUCLEAR MAGNETIC RESONANCE IMAGING
  8. ATENOLOL [Concomitant]
  9. CLONIDINE [Concomitant]
  10. MAGNEVIST [Suspect]
     Indication: NUCLEAR MAGNETIC RESONANCE IMAGING ABDOMINAL
     Dosage: 16 ML
     Dates: start: 20030612, end: 20030612
  11. OMNISCAN [Suspect]
     Dosage: UNK
     Dates: start: 20041110
  12. MULTIHANCE [Suspect]
  13. SENSIPAR [Concomitant]
  14. MAGNEVIST [Suspect]
     Dosage: UNK UNK, ONCE
     Dates: start: 20040413, end: 20040413
  15. MAGNEVIST [Suspect]
     Indication: NUCLEAR MAGNETIC RESONANCE IMAGING
     Dates: start: 20041110, end: 20041110
  16. EPOGEN [Concomitant]
  17. OMNISCAN [Suspect]
     Indication: NUCLEAR MAGNETIC RESONANCE IMAGING
     Dosage: 20 ML
     Dates: start: 20040413, end: 20040413
  18. PROHANCE [Suspect]
     Indication: NUCLEAR MAGNETIC RESONANCE IMAGING
  19. MAGNEVIST [Suspect]
     Indication: NUCLEAR MAGNETIC RESONANCE IMAGING BRAIN
     Dosage: UNK UNK, ONCE
     Dates: start: 20041107, end: 20041107
  20. OMNISCAN [Suspect]
     Dosage: 30 ML
     Dates: start: 20040526, end: 20040526
  21. PROHANCE [Suspect]
  22. RENAGEL [Concomitant]
  23. CELLCEPT [Concomitant]
  24. CYCLOSPORINE [Concomitant]
  25. INSULIN [Concomitant]
  26. PREDNISONE [Concomitant]

REACTIONS (20)
  - EXFOLIATIVE RASH [None]
  - OEDEMA PERIPHERAL [None]
  - MOBILITY DECREASED [None]
  - INJURY [None]
  - PAIN OF SKIN [None]
  - JOINT CONTRACTURE [None]
  - JOINT SWELLING [None]
  - RASH MACULAR [None]
  - PAIN [None]
  - ANXIETY [None]
  - JOINT STIFFNESS [None]
  - SCAR [None]
  - ABASIA [None]
  - EMOTIONAL DISTRESS [None]
  - SKIN TIGHTNESS [None]
  - GENERAL PHYSICAL HEALTH DETERIORATION [None]
  - JOINT RANGE OF MOTION DECREASED [None]
  - NEPHROGENIC SYSTEMIC FIBROSIS [None]
  - ANHEDONIA [None]
  - SKIN EXFOLIATION [None]
